FAERS Safety Report 16242053 (Version 1)
Quarter: 2019Q2

REPORT INFORMATION
  Report Type: Spontaneous
  Country: GR (occurrence: GR)
  Receive Date: 20190426
  Receipt Date: 20190426
  Transmission Date: 20190711
  Serious: Yes (Death, Hospitalization, Other)
  Sender: FDA-Public Use
  Company Number: GR-B.I. PHARMACEUTICALS,INC./RIDGEFIELD-2019-12-001348

PATIENT
  Age: 47 Year
  Sex: Male

DRUGS (7)
  1. PRADAXA [Suspect]
     Active Substance: DABIGATRAN ETEXILATE MESYLATE
     Indication: PRODUCT USED FOR UNKNOWN INDICATION
     Dosage: 110 MG, BID
     Route: 065
  2. EPLERENONE. [Suspect]
     Active Substance: EPLERENONE
     Indication: PRODUCT USED FOR UNKNOWN INDICATION
     Dosage: 25 MG, QD
     Route: 065
  3. LEVOSIMENDAN [Suspect]
     Active Substance: LEVOSIMENDAN
     Indication: CARDIAC FAILURE
     Dosage: UNK
     Route: 065
  4. SIMVASTATIN. [Suspect]
     Active Substance: SIMVASTATIN
     Indication: PRODUCT USED FOR UNKNOWN INDICATION
     Dosage: 20 MG, QD
     Route: 065
  5. CARVEDILOL. [Suspect]
     Active Substance: CARVEDILOL
     Indication: PRODUCT USED FOR UNKNOWN INDICATION
     Dosage: 12.5 MG, BID
     Route: 065
  6. VALSARTAN. [Suspect]
     Active Substance: VALSARTAN
     Indication: PRODUCT USED FOR UNKNOWN INDICATION
     Dosage: 80 MG, QD
     Route: 065
  7. FUROSEMIDE. [Suspect]
     Active Substance: FUROSEMIDE
     Indication: PRODUCT USED FOR UNKNOWN INDICATION
     Dosage: 40 MG, BID
     Route: 065

REACTIONS (8)
  - Acute pulmonary oedema [Unknown]
  - Blood pressure systolic decreased [Unknown]
  - Diastolic dysfunction [Unknown]
  - Ventricular hypokinesia [Unknown]
  - Tachycardia [Unknown]
  - Cardiac failure [Fatal]
  - Left ventricular dilatation [Unknown]
  - Mitral valve incompetence [Unknown]

NARRATIVE: CASE EVENT DATE: 2017
